FAERS Safety Report 5345888-5 (Version None)
Quarter: 2007Q2

REPORT INFORMATION
  Report Type: 
  Country: None (occurrence: None)
  Receive Date: 20070605
  Receipt Date: 20070524
  Transmission Date: 20071010
  Serious: Yes (Hospitalization)
  Sender: FDA-Public Use
  Company Number: JP-ROCHE-490899

PATIENT
  Age: 33 Year
  Sex: Male

DRUGS (10)
  1. VALIXA [Suspect]
     Route: 048
     Dates: start: 20050401, end: 20050613
  2. VALIXA [Suspect]
     Dosage: INDICATION: CYTOMEGALOVIRUS VIRAEMIA. DRUG MAINTAINED AS OF 31 MARCH 2006.
     Route: 048
     Dates: start: 20050921
  3. EPIVIR [Suspect]
     Indication: HIV INFECTION
     Route: 048
     Dates: start: 20050401, end: 20050518
  4. EPIVIR [Suspect]
     Route: 048
     Dates: start: 20050803
  5. ZERIT [Suspect]
     Indication: HIV INFECTION
     Route: 048
     Dates: start: 20050401, end: 20050518
  6. ZERIT [Suspect]
     Route: 048
     Dates: start: 20050803
  7. STOCRIN [Concomitant]
     Route: 048
     Dates: start: 20050401, end: 20050613
  8. DIFLUCAN [Concomitant]
     Dosage: THE DRUG WAS DISCONTINUED ON 13 JUNE 2005 AND RESTARTED ON 22 SEPTEMBER 2005 AT 100MG DAILY.
     Route: 048
     Dates: start: 20050428
  9. TRUVADA [Concomitant]
     Route: 048
     Dates: start: 20050519, end: 20050613
  10. KETOTIFEN [Concomitant]
     Route: 048
     Dates: start: 20050519, end: 20050613

REACTIONS (5)
  - CYTOMEGALOVIRUS VIRAEMIA [None]
  - IMMUNE RECONSTITUTION SYNDROME [None]
  - IRON DEFICIENCY ANAEMIA [None]
  - RHINITIS ALLERGIC [None]
  - UPPER RESPIRATORY TRACT INFLAMMATION [None]
